FAERS Safety Report 25043987 (Version 1)
Quarter: 2025Q1

REPORT INFORMATION
  Report Type: Spontaneous
  Country: US (occurrence: None)
  Receive Date: 20250306
  Receipt Date: 20250306
  Transmission Date: 20250409
  Serious: No
  Sender: ALEXION PHARMACEUTICALS
  Company Number: US-PROCTER+GAMBLE-PH25001306

PATIENT
  Age: 85 Year

DRUGS (2)
  1. PRILOSEC [Suspect]
     Active Substance: OMEPRAZOLE MAGNESIUM
  2. PRILOSEC [Suspect]
     Active Substance: OMEPRAZOLE MAGNESIUM
     Dosage: 1 TABLET, 1 /DAY, STARTED MID JANUARY 2025

REACTIONS (5)
  - Drug ineffective [Unknown]
  - Therapeutic product effect decreased [Unknown]
  - Dyspepsia [Not Recovered/Not Resolved]
  - Condition aggravated [Not Recovered/Not Resolved]
  - Incorrect product administration duration [Unknown]
